FAERS Safety Report 8071897-1 (Version None)
Quarter: 2012Q1

REPORT INFORMATION
  Report Type: 
  Country: None (occurrence: None)
  Receive Date: 20120126
  Receipt Date: 20120116
  Transmission Date: 20120608
  Serious: Yes (Other)
  Sender: FDA-Public Use
  Company Number: FR-AMGEN-FRASP2012002763

PATIENT
  Age: 63 Year
  Sex: Female

DRUGS (3)
  1. ENBREL [Suspect]
     Indication: POLYARTHRITIS
     Dosage: 50 MG, 2X/WEEK
  2. ENBREL [Suspect]
     Dosage: 50 MG, WEEKLY
  3. METHOTREXATE SODIUM [Concomitant]
     Dosage: 15 MG, WEEKLY

REACTIONS (1)
  - POLYARTHRITIS [None]
